FAERS Safety Report 6303637-8 (Version None)
Quarter: 2009Q3

REPORT INFORMATION
  Report Type: 
  Country: None (occurrence: None)
  Receive Date: 20090807
  Receipt Date: 20090807
  Transmission Date: 20100115
  Serious: Yes (Other)
  Sender: FDA-Public Use
  Company Number: None

PATIENT
  Sex: Female

DRUGS (1)
  1. DYSPORT [Suspect]
     Dosage: (62.5 UNITS, ONCE), INTRAMUSCULAR
     Route: 030
     Dates: start: 20090722, end: 20090722

REACTIONS (10)
  - ASTHENIA [None]
  - ASTHENOPIA [None]
  - DIZZINESS [None]
  - DYSPNOEA [None]
  - HEART RATE INCREASED [None]
  - INSOMNIA [None]
  - JAW DISORDER [None]
  - PRESYNCOPE [None]
  - PYREXIA [None]
  - RESPIRATORY RATE INCREASED [None]
